FAERS Safety Report 11194448 (Version 1)
Quarter: 2015Q2

REPORT INFORMATION
  Report Type: Spontaneous
  Country: CH (occurrence: CH)
  Receive Date: 20150616
  Receipt Date: 20150616
  Transmission Date: 20150821
  Serious: Yes (Other)
  Sender: FDA-Public Use
  Company Number: CH-GILEAD-2015-0157552

PATIENT

DRUGS (9)
  1. VIREAD [Suspect]
     Active Substance: TENOFOVIR DISOPROXIL FUMARATE
     Indication: HIV INFECTION
     Dosage: 245 MG, QD
     Route: 065
     Dates: start: 200303, end: 200403
  2. INVIRASE [Concomitant]
     Active Substance: SAQUINAVIR MESYLATE
     Indication: HIV INFECTION
     Dosage: 600 MG, BID
     Route: 065
     Dates: start: 200306, end: 200603
  3. REYATAZ [Concomitant]
     Active Substance: ATAZANAVIR SULFATE
     Indication: HIV INFECTION
     Dosage: 300 MG, QD
     Route: 065
     Dates: start: 200405, end: 200606
  4. APTIVUS [Concomitant]
     Active Substance: TIPRANAVIR
     Indication: HIV INFECTION
     Dosage: 500 MG, BID
     Route: 065
     Dates: start: 200606, end: 200707
  5. ZERIT [Concomitant]
     Active Substance: STAVUDINE
     Indication: HIV INFECTION
     Dosage: 30 MG, BID
     Route: 065
     Dates: start: 199710, end: 200303
  6. COMBIVIR [Concomitant]
     Active Substance: LAMIVUDINE\ZIDOVUDINE
     Indication: HIV INFECTION
     Dosage: 1 DF, BID
     Route: 065
     Dates: start: 200608, end: 200707
  7. FUZEON [Concomitant]
     Active Substance: ENFUVIRTIDE
     Indication: HIV INFECTION
     Dosage: 90 MG, BID
     Route: 058
     Dates: start: 200405, end: 200707
  8. STOCRIN [Concomitant]
     Active Substance: EFAVIRENZ
     Indication: HIV INFECTION
     Dosage: 600 MG, QD
     Route: 065
     Dates: start: 200303, end: 200403
  9. VIREAD [Suspect]
     Active Substance: TENOFOVIR DISOPROXIL FUMARATE
     Indication: HEPATITIS B
     Dosage: 245 MG, QD
     Route: 065
     Dates: start: 200405, end: 200707

REACTIONS (4)
  - Fanconi syndrome acquired [Unknown]
  - Renal failure [Unknown]
  - Renal tubular disorder [Unknown]
  - Osteoporosis [Unknown]
